FAERS Safety Report 9053526 (Version 1)
Quarter: 2013Q1

REPORT INFORMATION
  Report Type: Spontaneous
  Country: US (occurrence: None)
  Receive Date: 20130201
  Receipt Date: 20130201
  Transmission Date: 20140127
  Serious: Yes (Death)
  Sender: FDA-Public Use
  Company Number: None

PATIENT
  Age: 55 Year
  Sex: Male
  Weight: 111 kg

DRUGS (2)
  1. XARELTO [Suspect]
  2. ASPIRIN [Suspect]

REACTIONS (3)
  - Epistaxis [None]
  - Aspiration [None]
  - Hypoxia [None]
